FAERS Safety Report 26114832 (Version 1)
Quarter: 2025Q4

REPORT INFORMATION
  Report Type: Report from Study
  Country: EU (occurrence: EU)
  Receive Date: 20251203
  Receipt Date: 20251203
  Transmission Date: 20260118
  Serious: Yes (Hospitalization)
  Sender: ABBVIE
  Company Number: EU-ABBVIE-6569495

PATIENT
  Age: 53 Year
  Sex: Male

DRUGS (4)
  1. RINVOQ [Suspect]
     Active Substance: UPADACITINIB
     Indication: Axial spondyloarthritis
     Route: 048
  2. BIMZELX [Suspect]
     Active Substance: BIMEKIZUMAB-BKZX
     Indication: Product used for unknown indication
     Route: 065
     Dates: start: 20240522, end: 20240522
  3. NAPROXEN [Suspect]
     Active Substance: NAPROXEN
     Indication: Product used for unknown indication
     Route: 065
     Dates: start: 20240601
  4. NAPROXEN [Suspect]
     Active Substance: NAPROXEN
     Indication: Product used for unknown indication
     Route: 065
     Dates: start: 20250324

REACTIONS (12)
  - Pain [Unknown]
  - Chronic obstructive pulmonary disease [Unknown]
  - Claustrophobia [Unknown]
  - Cataract [Unknown]
  - Bronchitis [Unknown]
  - Axial spondyloarthritis [Unknown]
  - Cough [Unknown]
  - Paraesthesia [Unknown]
  - Pain [Unknown]
  - Diabetes mellitus [Unknown]
  - Depression [Unknown]
  - Arthralgia [Unknown]

NARRATIVE: CASE EVENT DATE: 20241004
